FAERS Safety Report 12483475 (Version 9)
Quarter: 2019Q2

REPORT INFORMATION
  Report Type: Report from Study
  Country: US (occurrence: US)
  Receive Date: 20160621
  Receipt Date: 20190625
  Transmission Date: 20190711
  Serious: Yes (Other)
  Sender: FDA-Public Use
  Company Number: PHHY2016US084204

PATIENT
  Age: 58 Year
  Sex: Female

DRUGS (1)
  1. GILENYA [Suspect]
     Active Substance: FINGOLIMOD HYDROCHLORIDE
     Indication: MULTIPLE SCLEROSIS
     Dosage: UNK, QD
     Route: 048

REACTIONS (13)
  - Alanine aminotransferase increased [Unknown]
  - Asthenia [Unknown]
  - Insomnia [Unknown]
  - Micturition urgency [Unknown]
  - Nausea [Unknown]
  - Aspartate aminotransferase increased [Unknown]
  - Fall [Unknown]
  - Urinary incontinence [Unknown]
  - Hemiparesis [Unknown]
  - Fatigue [Unknown]
  - Visual impairment [Unknown]
  - Hemiparaesthesia [Unknown]
  - Upper respiratory tract infection [Unknown]

NARRATIVE: CASE EVENT DATE: 20151025
